FAERS Safety Report 4645812-4 (Version None)
Quarter: 2005Q2

REPORT INFORMATION
  Report Type: 
  Country: None (occurrence: None)
  Receive Date: 20050426
  Receipt Date: 20050426
  Transmission Date: 20051028
  Serious: Yes (Life-Threatening, Hospitalization)
  Sender: FDA-Public Use
  Company Number: None

PATIENT
  Age: 59 Year
  Sex: Female
  Weight: 63.5036 kg

DRUGS (2)
  1. NAPROXEN [Suspect]
     Indication: PAIN
     Dosage: 500 MG PO BID
     Route: 048
     Dates: start: 20040701, end: 20040701
  2. NAPROXEN [Suspect]
     Indication: PAIN
     Dosage: 500 MG PO BID
     Route: 048
     Dates: start: 20040801, end: 20040801

REACTIONS (14)
  - ANAEMIA [None]
  - ASTHENIA [None]
  - CELLULITIS [None]
  - CORONARY ARTERY STENOSIS [None]
  - DEEP VEIN THROMBOSIS [None]
  - GASTRITIS [None]
  - HAEMATEMESIS [None]
  - HAEMATOMA [None]
  - HYPERCHOLESTEROLAEMIA [None]
  - HYPOAESTHESIA [None]
  - LIVER FUNCTION TEST ABNORMAL [None]
  - NEUROPATHY PERIPHERAL [None]
  - THROMBOCYTOPENIA [None]
  - VASCULAR PROCEDURE COMPLICATION [None]
